FAERS Safety Report 21218971 (Version 4)
Quarter: 2023Q1

REPORT INFORMATION
  Report Type: Report from Study
  Country: CN (occurrence: CN)
  Receive Date: 20220816
  Receipt Date: 20230317
  Transmission Date: 20230417
  Serious: Yes (Hospitalization)
  Sender: FDA-Public Use
  Company Number: CN-KARYOPHARM-2022KPT000950

PATIENT
  Age: 66 Year
  Sex: Male
  Weight: 78 kg

DRUGS (7)
  1. SELINEXOR [Suspect]
     Active Substance: SELINEXOR
     Indication: Plasma cell myeloma
     Dosage: 100 MG, WEEKLY
     Route: 048
     Dates: start: 20220608, end: 20220624
  2. SELINEXOR [Suspect]
     Active Substance: SELINEXOR
     Dosage: 80 MG, WEEKLY
     Route: 048
     Dates: start: 20220630, end: 20220715
  3. BORTEZOMIB [Suspect]
     Active Substance: BORTEZOMIB
     Indication: Plasma cell myeloma
     Dosage: 2 MG
     Route: 058
     Dates: start: 20220608, end: 20220805
  4. DEXAMETHASONE [Suspect]
     Active Substance: DEXAMETHASONE
     Indication: Plasma cell myeloma
     Dosage: 20 MG
     Route: 048
     Dates: start: 20220608, end: 20220805
  5. GLUTATHIONE [Concomitant]
     Active Substance: GLUTATHIONE
     Indication: Liver injury
     Dosage: UNK, QD
     Route: 042
     Dates: start: 20220804
  6. COMPOUND TRIVITAMIN B FOR INJECTION [Concomitant]
     Indication: Hypovitaminosis
     Dosage: UNK, QD
     Route: 042
     Dates: start: 20220804
  7. RABEPRAZOLE SODIUM [Concomitant]
     Active Substance: RABEPRAZOLE SODIUM
     Indication: Gastric disorder
     Dosage: UNK
     Route: 042
     Dates: start: 20220804

REACTIONS (1)
  - Pyrexia [Recovered/Resolved]

NARRATIVE: CASE EVENT DATE: 20220805
